FAERS Safety Report 19252056 (Version 3)
Quarter: 2021Q2

REPORT INFORMATION
  Report Type: Spontaneous
  Country: US (occurrence: US)
  Receive Date: 20210513
  Receipt Date: 20210525
  Transmission Date: 20210717
  Serious: Yes (Other)
  Sender: FDA-Public Use
  Company Number: US-ABBVIE-21K-163-3897289-00

PATIENT
  Sex: Male

DRUGS (2)
  1. CREON [Suspect]
     Active Substance: PANCRELIPASE AMYLASE\PANCRELIPASE LIPASE\PANCRELIPASE PROTEASE
     Indication: PANCREATIC FAILURE
  2. CREON [Suspect]
     Active Substance: PANCRELIPASE AMYLASE\PANCRELIPASE LIPASE\PANCRELIPASE PROTEASE
     Indication: CROHN^S DISEASE
     Dosage: BEEN ON CREON FOR OVER 22 YEARS
     Route: 048

REACTIONS (5)
  - Stoma creation [Unknown]
  - Haemodialysis [Unknown]
  - Pancreatitis [Unknown]
  - Hypercalcaemia [Unknown]
  - Diverticulitis [Unknown]

NARRATIVE: CASE EVENT DATE: 2021
